FAERS Safety Report 10132564 (Version 1)
Quarter: 2014Q2

REPORT INFORMATION
  Report Type: Spontaneous
  Country: US (occurrence: US)
  Receive Date: 20140428
  Receipt Date: 20140428
  Transmission Date: 20141212
  Serious: Yes (Hospitalization)
  Sender: FDA-Public Use
  Company Number: US-BAYER-2014-059605

PATIENT
  Age: 32 Year
  Sex: Female
  Weight: 56.24 kg

DRUGS (9)
  1. YAZ [Suspect]
  2. YASMIN [Suspect]
  3. ZOLOFT [Concomitant]
     Dosage: 50 MG, PER DAY
  4. VITAMIN B12 [Concomitant]
  5. LORATADINE [Concomitant]
     Dosage: 10 MG, UNK
  6. FAMOTIDINE [Concomitant]
     Dosage: 40 MG, UNK
  7. DOXYCYCLINE [Concomitant]
     Dosage: 100 MG, UNK
  8. PREDNISONE [Concomitant]
     Dosage: 10 MG, UNK
  9. BENADRYL [Concomitant]

REACTIONS (2)
  - Pulmonary embolism [Recovered/Resolved]
  - Cholecystitis chronic [None]
